FAERS Safety Report 5089985-0 (Version None)
Quarter: 2006Q3

REPORT INFORMATION
  Report Type: 
  Country: None (occurrence: None)
  Receive Date: 20060731
  Receipt Date: 20060501
  Transmission Date: 20061208
  Serious: Yes (Life-Threatening, Other)
  Sender: FDA-Public Use
  Company Number: 200611330BWH

PATIENT
  Age: 52 Year
  Sex: Male

DRUGS (2)
  1. AVELOX [Suspect]
     Indication: PNEUMONIA
     Dosage: 400 MG, ONCE, ORAL
     Route: 048
  2. LEVAQUIN [Suspect]
     Indication: PNEUMONIA

REACTIONS (5)
  - ANAPHYLACTIC REACTION [None]
  - ASTHENIA [None]
  - ELECTROCARDIOGRAM ST SEGMENT DEPRESSION [None]
  - HYPOTENSION [None]
  - PARAESTHESIA [None]
